FAERS Safety Report 7611828-9 (Version None)
Quarter: 2011Q3

REPORT INFORMATION
  Report Type: 
  Country: None (occurrence: None)
  Receive Date: 20110715
  Receipt Date: 20110712
  Transmission Date: 20111222
  Serious: Yes (Death)
  Sender: FDA-Public Use
  Company Number: US-CELGENEUS-163-21880-11050750

PATIENT
  Sex: Male

DRUGS (9)
  1. ASCORBIC ACID [Concomitant]
     Dosage: 100 MICROGRAM
     Route: 050
  2. REVLIMID [Suspect]
     Indication: MYELODYSPLASTIC SYNDROME
     Dosage: 10 MILLIGRAM
     Route: 048
     Dates: start: 20110201
  3. ASPIRIN [Concomitant]
     Dosage: 81 MILLIGRAM
     Route: 065
  4. GLIPIZIDE [Concomitant]
     Dosage: 10 MILLIGRAM
     Route: 065
  5. METFORMIN HCL [Concomitant]
     Dosage: 500 MILLIGRAM
     Route: 065
  6. MULTI-VITAMIN [Concomitant]
     Route: 065
  7. PLAVIX [Concomitant]
     Dosage: 75 MILLIGRAM
     Route: 065
  8. VITAMIN B-12 [Concomitant]
     Dosage: 1000 MICROGRAM
     Route: 050
  9. SIMVASTATIN [Concomitant]
     Dosage: 10 MILLIGRAM
     Route: 065

REACTIONS (2)
  - MYELODYSPLASTIC SYNDROME [None]
  - ACUTE LEUKAEMIA [None]
